FAERS Safety Report 8406714-0 (Version None)
Quarter: 2012Q2

REPORT INFORMATION
  Report Type: 
  Country: None (occurrence: None)
  Receive Date: 20120604
  Receipt Date: 20120524
  Transmission Date: 20120825
  Serious: Yes (Other)
  Sender: FDA-Public Use
  Company Number: DE-PFIZER INC-2012103807

PATIENT
  Age: 15 Year

DRUGS (4)
  1. CISPLATIN [Suspect]
     Indication: HEPATIC NEOPLASM MALIGNANT RESECTABLE
     Dosage: 80 MG/M^2/24H D1 CYCLICAL
     Route: 041
  2. DOXORUBICIN HCL [Suspect]
     Indication: HEPATIC NEOPLASM MALIGNANT RESECTABLE
     Dosage: 60 MG/M^2/48H D2+3 CYCLICAL
     Route: 041
  3. SORAFENIB [Suspect]
     Indication: HEPATIC NEOPLASM MALIGNANT RESECTABLE
     Dosage: 533 MG/M^2 /DAY/CYCLIC
     Route: 065
  4. FLUOROURACIL [Concomitant]
     Indication: HEPATIC NEOPLASM MALIGNANT RESECTABLE
     Dosage: UNK
     Route: 065

REACTIONS (1)
  - PALMAR-PLANTAR ERYTHRODYSAESTHESIA SYNDROME [None]
